FAERS Safety Report 19251308 (Version 3)
Quarter: 2021Q2

REPORT INFORMATION
  Report Type: Report from Study
  Country: CN (occurrence: CN)
  Receive Date: 20210512
  Receipt Date: 20210603
  Transmission Date: 20210717
  Serious: Yes (Hospitalization)
  Sender: FDA-Public Use
  Company Number: CN-PFIZER INC-2021499854

PATIENT
  Age: 37 Year
  Sex: Female
  Weight: 83 kg

DRUGS (6)
  1. ABEMACICLIB [Suspect]
     Active Substance: ABEMACICLIB
     Indication: INVASIVE DUCTAL BREAST CARCINOMA
     Dosage: 150 MG, 2X/DAY, CAPSULE
     Route: 048
     Dates: start: 20181227, end: 20201222
  2. EXEMESTANE. [Suspect]
     Active Substance: EXEMESTANE
     Indication: INVASIVE DUCTAL BREAST CARCINOMA
     Dosage: 25 MG, DAILY
     Route: 048
     Dates: start: 20181228, end: 20190416
  3. LEUPRORELIN ACETATE [Suspect]
     Active Substance: LEUPROLIDE ACETATE
     Indication: INVASIVE DUCTAL BREAST CARCINOMA
     Dosage: 3.75 MG, EVERY 4 WEEKS, SOLUTION FOR INJECTION
     Route: 058
     Dates: start: 20190411
  4. TAMOXIFEN [Suspect]
     Active Substance: TAMOXIFEN
     Indication: INVASIVE DUCTAL BREAST CARCINOMA
     Dosage: 10 MG, DAILY, TABLET
     Route: 048
  5. GOSERELIN [Suspect]
     Active Substance: GOSERELIN
     Indication: INVASIVE DUCTAL BREAST CARCINOMA
     Dosage: 3.6 MG, EVERY 4 WEEKS, GEL FOR INJECTION
     Route: 058
     Dates: start: 20190118, end: 20190313
  6. ZOLEDRONIC ACID [Concomitant]
     Active Substance: ZOLEDRONIC ACID
     Indication: PROPHYLAXIS
     Dosage: UNK
     Dates: start: 20190925

REACTIONS (1)
  - Hyperglycaemia [Recovered/Resolved]

NARRATIVE: CASE EVENT DATE: 20210330
